FAERS Safety Report 25411840 (Version 1)
Quarter: 2025Q2

REPORT INFORMATION
  Report Type: Spontaneous
  Country: CN (occurrence: CN)
  Receive Date: 20250609
  Receipt Date: 20250609
  Transmission Date: 20250716
  Serious: Yes (Other)
  Sender: ROCHE
  Company Number: None

PATIENT
  Age: 28 Year
  Sex: Male
  Weight: 65 kg

DRUGS (3)
  1. MYCOPHENOLATE MOFETIL [Suspect]
     Active Substance: MYCOPHENOLATE MOFETIL
     Indication: Immunosuppressant drug therapy
     Route: 048
     Dates: start: 2019
  2. PREDNISONE [Suspect]
     Active Substance: PREDNISONE
     Indication: Immunosuppressant drug therapy
     Route: 065
     Dates: start: 2019
  3. TACROLIMUS [Suspect]
     Active Substance: TACROLIMUS
     Indication: Immunosuppressant drug therapy
     Route: 065
     Dates: start: 2019

REACTIONS (3)
  - Polyomavirus-associated nephropathy [Recovered/Resolved]
  - Acute kidney injury [Not Recovered/Not Resolved]
  - Renal transplant failure [Not Recovered/Not Resolved]

NARRATIVE: CASE EVENT DATE: 20200101
